FAERS Safety Report 7202900-6 (Version None)
Quarter: 2010Q4

REPORT INFORMATION
  Report Type: 
  Country: None (occurrence: None)
  Receive Date: 20101229
  Receipt Date: 20101222
  Transmission Date: 20110411
  Serious: Yes (Hospitalization)
  Sender: FDA-Public Use
  Company Number: PK-PFIZER INC-2010179845

PATIENT
  Age: 75 Year
  Sex: Male

DRUGS (5)
  1. CHANTIX [Suspect]
     Indication: SMOKING CESSATION THERAPY
     Dosage: 0.5 MG, 2X/DAY
     Route: 048
     Dates: start: 20101206, end: 20101208
  2. INSULIN [Concomitant]
     Indication: DIABETES MELLITUS
     Dosage: 70 MG, 2X/DAY
     Route: 058
  3. ZESTRIL [Concomitant]
     Indication: BLOOD PRESSURE
     Dosage: 20 MG, 1X/DAY
     Route: 048
  4. GABAPENTIN [Concomitant]
     Indication: PAIN
     Dosage: UNK
  5. MECOBALAMIN [Concomitant]
     Dosage: UNK

REACTIONS (3)
  - HYPERHIDROSIS [None]
  - IRRITABILITY [None]
  - SLEEP DISORDER [None]
